FAERS Safety Report 15798659 (Version 1)
Quarter: 2019Q1

REPORT INFORMATION
  Report Type: Spontaneous
  Country: US (occurrence: US)
  Receive Date: 20190108
  Receipt Date: 20190108
  Transmission Date: 20190417
  Serious: No
  Sender: FDA-Public Use
  Company Number: US-SA-2019SA000881

PATIENT
  Age: 63 Year
  Sex: Male

DRUGS (1)
  1. ALLEGRA D 12 HOUR ALLERGY AND CONGESTION [Suspect]
     Active Substance: FEXOFENADINE HYDROCHLORIDE\PSEUDOEPHEDRINE HYDROCHLORIDE
     Indication: HYPERSENSITIVITY
     Dosage: UNK UNK, QD
     Route: 048

REACTIONS (1)
  - Rhinorrhoea [Unknown]
